FAERS Safety Report 23470066 (Version 2)
Quarter: 2024Q2

REPORT INFORMATION
  Report Type: Spontaneous
  Country: US (occurrence: US)
  Receive Date: 20240202
  Receipt Date: 20240401
  Transmission Date: 20240716
  Serious: Yes (Other)
  Sender: FDA-Public Use
  Company Number: US-NOVOPROD-1166201

PATIENT
  Age: 67 Year
  Sex: Male

DRUGS (1)
  1. RYBELSUS [Suspect]
     Active Substance: SEMAGLUTIDE
     Indication: Glucose tolerance impaired
     Dosage: UNK
     Route: 048
     Dates: start: 202203

REACTIONS (6)
  - Knee arthroplasty [Recovered/Resolved]
  - Corrective lens user [Unknown]
  - Glycosylated haemoglobin increased [Unknown]
  - Product taste abnormal [Unknown]
  - Product dispensing error [Unknown]
  - Product use in unapproved indication [Unknown]

NARRATIVE: CASE EVENT DATE: 20230131
